FAERS Safety Report 23197473 (Version 1)
Quarter: 2023Q4

REPORT INFORMATION
  Report Type: Spontaneous
  Country: GB (occurrence: GB)
  Receive Date: 20231117
  Receipt Date: 20231117
  Transmission Date: 20240110
  Serious: Yes (Other)
  Sender: FDA-Public Use
  Company Number: None

PATIENT
  Sex: Female

DRUGS (2)
  1. VENLAFAXINE [Suspect]
     Active Substance: VENLAFAXINE HYDROCHLORIDE
     Indication: Menopause
     Dosage: 75 (UNIT UNSPECIFIED) 35 (UNIT UNSPECIFIED) QD (75 AND 35 DAILY)
     Route: 065
  2. VENLAFAXINE [Suspect]
     Active Substance: VENLAFAXINE HYDROCHLORIDE
     Indication: Premenstrual dysphoric disorder

REACTIONS (2)
  - Heart rate [Recovered/Resolved]
  - Hyperhidrosis [Recovered/Resolved]
